FAERS Safety Report 8171990-9 (Version None)
Quarter: 2012Q1

REPORT INFORMATION
  Report Type: 
  Country: None (occurrence: None)
  Receive Date: 20120228
  Receipt Date: 20120213
  Transmission Date: 20120608
  Serious: Yes (Hospitalization)
  Sender: FDA-Public Use
  Company Number: US-WATSON-2012-03329

PATIENT
  Weight: 80 kg

DRUGS (1)
  1. BACLOFEN [Suspect]
     Indication: PRODUCT USED FOR UNKNOWN INDICATION
     Dosage: UNK
     Route: 065

REACTIONS (6)
  - DRUG ABUSE [None]
  - HYPERTENSION [None]
  - RESPIRATORY DEPRESSION [None]
  - OVERDOSE [None]
  - HYPOTHERMIA [None]
  - BRADYCARDIA [None]
